FAERS Safety Report 9995581 (Version 1)
Quarter: 2014Q1

REPORT INFORMATION
  Report Type: Spontaneous
  Country: CH (occurrence: CH)
  Receive Date: 20140311
  Receipt Date: 20140311
  Transmission Date: 20141002
  Serious: Yes (Other)
  Sender: FDA-Public Use
  Company Number: CH-BAYER-2014-030499

PATIENT
  Age: 34 Year
  Sex: Female

DRUGS (7)
  1. NIFEDIPINE [Suspect]
     Indication: TOCOLYSIS
  2. INDOMETHACIN [Suspect]
     Indication: TOCOLYSIS
     Dosage: INTERMITTENTLY FOR 48 HOURS
  3. ATOSIBAN [Suspect]
     Indication: TOCOLYSIS
     Dosage: ONE DOSE ONCE
  4. PROGESTERONE [Suspect]
     Indication: TOCOLYSIS
     Route: 067
  5. AMOXICILLIN [Suspect]
     Indication: ANTIBIOTIC PROPHYLAXIS
     Dosage: UNK
  6. AZITHROMYCIN [Suspect]
     Indication: ANTIBIOTIC PROPHYLAXIS
     Dosage: UNK UNK, ONCE
  7. ENOXAPARIN [Suspect]
     Indication: THROMBOSIS PROPHYLAXIS
     Dosage: DAILY DOSE 40 MG/D

REACTIONS (5)
  - Osteopenia [None]
  - Complex regional pain syndrome [Recovering/Resolving]
  - Premature rupture of membranes [None]
  - Exposure during pregnancy [None]
  - Premature baby [None]
